FAERS Safety Report 5200248-2 (Version None)
Quarter: 2007Q1

REPORT INFORMATION
  Report Type: 
  Country: None (occurrence: None)
  Receive Date: 20070105
  Receipt Date: 20070103
  Transmission Date: 20070707
  Serious: Yes (Other)
  Sender: FDA-Public Use
  Company Number: CH-ROXANE LABORATORIES, INC-2007-DE-00046GD

PATIENT
  Age: 14 Year
  Sex: Female
  Weight: 54 kg

DRUGS (3)
  1. SERTRALINE [Suspect]
     Indication: OBSESSIVE-COMPULSIVE DISORDER
     Dosage: 25 MG ON DAY 1, TITRATED UNTIL 200 MG ON DAY 42
  2. OLANZAPINE [Suspect]
     Indication: OBSESSIVE-COMPULSIVE DISORDER
     Dosage: 2,5 MG ON DAY 1, TITRATED UNTIL 10 MG ON DAY 42
  3. LORAZEPAM [Concomitant]
     Indication: ANXIETY
     Dosage: 0.5 - 1 MG, DEPENDING ON THE LEVEL OF ANXIETY

REACTIONS (5)
  - EPILEPTIC AURA [None]
  - GRAND MAL CONVULSION [None]
  - HEADACHE [None]
  - LOSS OF CONSCIOUSNESS [None]
  - VERTIGO [None]
